FAERS Safety Report 25236830 (Version 6)
Quarter: 2025Q3

REPORT INFORMATION
  Report Type: Report from Study
  Country: US (occurrence: US)
  Receive Date: 20250424
  Receipt Date: 20250716
  Transmission Date: 20251020
  Serious: No
  Sender: SUNOVION
  Company Number: US-SUMITOMO PHARMA SWITZERLAND GMBH-2025SPA004259

PATIENT

DRUGS (7)
  1. ORGOVYX [Suspect]
     Active Substance: RELUGOLIX
     Indication: Prostate cancer
     Dosage: 360 MG, SINGLE
     Route: 048
     Dates: start: 20250403, end: 20250403
  2. ORGOVYX [Suspect]
     Active Substance: RELUGOLIX
     Dosage: 120 MG, QD
     Route: 048
     Dates: start: 20250404
  3. COLLAGEN [Concomitant]
     Active Substance: COLLAGEN
     Route: 048
  4. VITAMINS [Concomitant]
     Active Substance: VITAMINS
     Route: 065
  5. IRON [Concomitant]
     Active Substance: IRON
     Route: 065
  6. TYLENOL EXTRA STRENGTH [Concomitant]
     Active Substance: ACETAMINOPHEN
     Route: 065
  7. IBUPROFEN [Concomitant]
     Active Substance: IBUPROFEN
     Route: 065

REACTIONS (11)
  - Hunger [Unknown]
  - Increased appetite [Unknown]
  - Micturition urgency [Unknown]
  - Dehydration [Unknown]
  - Brain fog [Unknown]
  - Nocturia [Unknown]
  - Joint stiffness [Unknown]
  - Dizziness [Unknown]
  - Fatigue [Unknown]
  - Arthralgia [Unknown]
  - Bone pain [Unknown]

NARRATIVE: CASE EVENT DATE: 20250407
